FAERS Safety Report 7593694-3 (Version None)
Quarter: 2011Q3

REPORT INFORMATION
  Report Type: 
  Country: None (occurrence: None)
  Receive Date: 20110706
  Receipt Date: 20110621
  Transmission Date: 20111222
  Serious: Yes (Hospitalization)
  Sender: FDA-Public Use
  Company Number: PHHY2011JP46199

PATIENT
  Sex: Male
  Weight: 64 kg

DRUGS (2)
  1. EXFORGE [Suspect]
     Indication: ESSENTIAL HYPERTENSION
     Dosage: 1 DF DAILY
     Route: 048
     Dates: start: 20110301, end: 20110408
  2. URINORM [Concomitant]
     Dosage: 50 MG, UNK
     Route: 048
     Dates: start: 20080401

REACTIONS (5)
  - DRUG ERUPTION [None]
  - DERMATITIS [None]
  - ECZEMA [None]
  - ERYTHEMA [None]
  - RASH PAPULAR [None]
